FAERS Safety Report 20101205 (Version 3)
Quarter: 2022Q1

REPORT INFORMATION
  Report Type: Report from Study
  Country: BE (occurrence: BE)
  Receive Date: 20211123
  Receipt Date: 20220124
  Transmission Date: 20220423
  Serious: Yes (Other)
  Sender: FDA-Public Use
  Company Number: BE-NOVARTISPH-NVSC2021BE265874

PATIENT
  Sex: Male

DRUGS (1)
  1. HYRIMOZ [Suspect]
     Active Substance: ADALIMUMAB-ADAZ
     Indication: Inflammatory bowel disease
     Dosage: UNK
     Route: 065

REACTIONS (11)
  - Inflammatory bowel disease [Unknown]
  - Pain [Not Recovered/Not Resolved]
  - Fatigue [Unknown]
  - Pollakiuria [Unknown]
  - Muscle spasms [Unknown]
  - Condition aggravated [Unknown]
  - Acidosis [Unknown]
  - Weight decreased [Unknown]
  - General physical health deterioration [Not Recovered/Not Resolved]
  - Weight increased [Unknown]
  - Treatment failure [Unknown]
